FAERS Safety Report 7948852-2 (Version None)
Quarter: 2011Q4

REPORT INFORMATION
  Report Type: 
  Country: None (occurrence: None)
  Receive Date: 20111130
  Receipt Date: 20111117
  Transmission Date: 20120403
  Serious: Yes (Hospitalization, Other)
  Sender: FDA-Public Use
  Company Number: PHHY2011DE90257

PATIENT
  Sex: Female

DRUGS (8)
  1. SEROQUEL [Concomitant]
  2. BENPERIDOL [Concomitant]
     Dosage: MAX. 12 MG QD
     Route: 048
     Dates: start: 20110816, end: 20110928
  3. CLOZAPINE [Suspect]
     Dosage: 350 MG / DAY
     Route: 048
     Dates: end: 20110928
  4. CLOZAPINE [Suspect]
     Dosage: {350 MG/D
     Route: 048
     Dates: start: 20110829
  5. QUETIAPINE [Concomitant]
     Dosage: MAX. 1 G QD
     Route: 048
     Dates: start: 20110629, end: 20111018
  6. RAMIPRIL [Concomitant]
  7. PROMETHAZINE HCL [Concomitant]
     Dosage: AS NEEDED MAX 35 MG QD
     Route: 048
     Dates: start: 20110624
  8. SINGULAIR [Concomitant]
     Dosage: UNK

REACTIONS (11)
  - DELIRIUM [None]
  - INFECTION [None]
  - COLITIS [None]
  - SOMNOLENCE [None]
  - ANTIPSYCHOTIC DRUG LEVEL INCREASED [None]
  - GENERAL PHYSICAL HEALTH DETERIORATION [None]
  - WHITE BLOOD CELL COUNT INCREASED [None]
  - PYREXIA [None]
  - AUTOIMMUNE DISORDER [None]
  - SOPOR [None]
  - INFLAMMATION [None]
